FAERS Safety Report 6754365-6 (Version None)
Quarter: 2010Q2

REPORT INFORMATION
  Report Type: 
  Country: None (occurrence: None)
  Receive Date: 20100601
  Receipt Date: 20100519
  Transmission Date: 20101027
  Serious: Yes (Hospitalization, Other)
  Sender: FDA-Public Use
  Company Number: 2010-1530

PATIENT
  Age: 54 Year
  Sex: Female

DRUGS (2)
  1. APO-GO AMPOULES (APO-GO) (APOMORPHINE HYDROCHLORIDE) (APOMORPHINE HYDR [Suspect]
     Indication: PARKINSON'S DISEASE
     Dosage: SUBCUTANEOUS
     Route: 058
     Dates: start: 20050101
  2. AMANTADINE HCL [Suspect]
     Indication: POOR PERIPHERAL CIRCULATION
     Dosage: ORAL
     Route: 048
     Dates: start: 20091001, end: 20100501

REACTIONS (2)
  - GANGRENE [None]
  - POOR PERIPHERAL CIRCULATION [None]
